FAERS Safety Report 7993946-9 (Version None)
Quarter: 2011Q4

REPORT INFORMATION
  Report Type: 
  Country: None (occurrence: None)
  Receive Date: 20111220
  Receipt Date: 20111212
  Transmission Date: 20120403
  Serious: Yes (Hospitalization)
  Sender: FDA-Public Use
  Company Number: FR-TEVA-313841ISR

PATIENT
  Age: 57 Year
  Sex: Female

DRUGS (4)
  1. FLUOROURACIL [Suspect]
     Indication: COLON CANCER METASTATIC
  2. IRINOTECAN HCL [Suspect]
     Indication: COLON CANCER METASTATIC
  3. BEVACIZUMAB [Suspect]
     Indication: COLON CANCER METASTATIC
  4. LEUCOVORIN CALCIUM [Suspect]
     Indication: COLON CANCER METASTATIC

REACTIONS (1)
  - PULMONARY NECROSIS [None]
